FAERS Safety Report 8950984 (Version 1)
Quarter: 2012Q4

REPORT INFORMATION
  Report Type: 
  Country: US (occurrence: US)
  Receive Date: 20121207
  Receipt Date: 20121207
  Transmission Date: 20130627
  Serious: Yes (Hospitalization, Other)
  Sender: FDA-Public Use
  Company Number: US-ELI_LILLY_AND_COMPANY-US201211009527

PATIENT
  Age: 70 Year
  Sex: Male

DRUGS (4)
  1. EFFIENT [Suspect]
     Indication: MYOCARDIAL INFARCTION
     Dosage: 10 mg, qd
     Route: 048
     Dates: start: 20120101
  2. ASPIRIN [Concomitant]
  3. LASIX [Concomitant]
  4. PANITOL [Concomitant]

REACTIONS (2)
  - Haemorrhage [Unknown]
  - Cataract [Unknown]
